FAERS Safety Report 17368115 (Version 1)
Quarter: 2020Q1

REPORT INFORMATION
  Report Type: Spontaneous
  Country: US (occurrence: US)
  Receive Date: 20200204
  Receipt Date: 20200204
  Transmission Date: 20200409
  Serious: Yes (Other)
  Sender: FDA-Public Use
  Company Number: US-GENBIOPRO-2019GEN00003

PATIENT
  Age: 22 Year
  Sex: Female
  Weight: 56.69 kg

DRUGS (3)
  1. MISOPROSTOL. [Suspect]
     Active Substance: MISOPROSTOL
     Indication: ABORTION
     Dosage: 800 MG, ONCE
     Route: 002
     Dates: start: 20191114, end: 20191114
  2. MIFEPRISTONE [Suspect]
     Active Substance: MIFEPRISTONE
     Indication: ABORTION
     Dosage: 200 MG, ONCE
     Route: 048
     Dates: start: 20191113, end: 20191113
  3. PRENATAL VITAMINS [Concomitant]
     Active Substance: VITAMINS

REACTIONS (2)
  - Uterine haemorrhage [Recovered/Resolved]
  - Anaemia [Recovering/Resolving]

NARRATIVE: CASE EVENT DATE: 201911
